FAERS Safety Report 4846103-9 (Version None)
Quarter: 2005Q4

REPORT INFORMATION
  Report Type: 
  Country: None (occurrence: None)
  Receive Date: 20051201
  Receipt Date: 20051122
  Transmission Date: 20060501
  Serious: Yes (Disabling)
  Sender: FDA-Public Use
  Company Number: 2005149237

PATIENT
  Age: 62 Year
  Sex: Male
  Weight: 82 kg

DRUGS (1)
  1. LIPITOR [Suspect]
     Indication: LIPIDS ABNORMAL
     Dosage: (20 MG,), ORAL
     Route: 048
     Dates: start: 20040813, end: 20050112

REACTIONS (2)
  - DIPLOPIA [None]
  - MYASTHENIC SYNDROME [None]
